FAERS Safety Report 15724504 (Version 2)
Quarter: 2018Q4

REPORT INFORMATION
  Report Type: Spontaneous
  Country: US (occurrence: US)
  Receive Date: 20181214
  Receipt Date: 20181218
  Transmission Date: 20190205
  Serious: No
  Sender: FDA-Public Use
  Company Number: US-SHIRE-US201848305

PATIENT
  Sex: Female
  Weight: 65.76 kg

DRUGS (4)
  1. LUMIFY [Concomitant]
     Active Substance: BRIMONIDINE TARTRATE
     Indication: PRODUCT USED FOR UNKNOWN INDICATION
  2. FEMRING [Concomitant]
     Active Substance: ESTRADIOL ACETATE
     Indication: OESTROGEN THERAPY
  3. XIIDRA [Suspect]
     Active Substance: LIFITEGRAST
     Indication: DRY EYE
     Dosage: 1 GTT, 2X/DAY:BID
     Route: 047
     Dates: start: 20181120
  4. FEMRING [Concomitant]
     Active Substance: ESTRADIOL ACETATE
     Indication: BLOOD OESTROGEN ABNORMAL

REACTIONS (4)
  - Instillation site irritation [Not Recovered/Not Resolved]
  - Instillation site erythema [Not Recovered/Not Resolved]
  - Sinus disorder [Not Recovered/Not Resolved]
  - Headache [Not Recovered/Not Resolved]

NARRATIVE: CASE EVENT DATE: 2018
